FAERS Safety Report 25524472 (Version 1)
Quarter: 2025Q3

REPORT INFORMATION
  Report Type: Spontaneous
  Country: EU (occurrence: EU)
  Receive Date: 20250707
  Receipt Date: 20250707
  Transmission Date: 20251021
  Serious: Yes (Other)
  Sender: SANOFI AVENTIS
  Company Number: EU-SA-2025SA179257

PATIENT
  Sex: Female

DRUGS (2)
  1. ZOLPIDEM TARTRATE [Suspect]
     Active Substance: ZOLPIDEM TARTRATE
  2. ALCOHOL [Suspect]
     Active Substance: ALCOHOL

REACTIONS (7)
  - Loss of consciousness [Unknown]
  - Brain fog [Unknown]
  - Disorientation [Unknown]
  - Amnesia [Unknown]
  - Dysgeusia [Unknown]
  - Fatigue [Unknown]
  - Intentional product misuse [Unknown]

NARRATIVE: CASE EVENT DATE: 20040101
